FAERS Safety Report 7959909-4 (Version None)
Quarter: 2011Q4

REPORT INFORMATION
  Report Type: 
  Country: None (occurrence: None)
  Receive Date: 20111206
  Receipt Date: 20111124
  Transmission Date: 20120403
  Serious: Yes (Hospitalization)
  Sender: FDA-Public Use
  Company Number: JP-MERCK-1111USA03778

PATIENT
  Age: 84 Year
  Sex: Male

DRUGS (11)
  1. KARIKUROMONE [Concomitant]
     Dosage: AFTER THE SUPPER IN DAYTIME IN THE MORNING 150(UNDER 1000 UNIT)
     Route: 048
  2. JUVELA N [Concomitant]
     Dosage: AFTER THE SUPPER IN DAYTIME IN THE MORNING
     Route: 048
  3. PLAVIX [Concomitant]
     Dosage: AFTER THE BREAKFAST
     Route: 048
     Dates: start: 20110826
  4. GLYBURIDE [Concomitant]
     Dosage: AFTER THE BREAKFAST
     Route: 048
  5. NIKORANMART [Concomitant]
     Dosage: AFTER THE SUPPER IN THE MORNING
     Route: 048
     Dates: start: 20110826
  6. ASPIRIN [Concomitant]
     Dosage: AFTER THE BREAKFAST
     Route: 048
     Dates: start: 20110729
  7. JANUVIA [Suspect]
     Route: 048
     Dates: start: 20111012, end: 20111124
  8. SEPAMIT-R [Concomitant]
     Dosage: AFTER THE SUPPER IN THE MORNING
     Route: 048
  9. MECOBALAMIN [Concomitant]
     Dosage: AFTER THE SUPPER IN DAYTIME IN THE MORNING
     Route: 048
  10. AMARYL [Suspect]
     Route: 048
     Dates: start: 20111012, end: 20111124
  11. LIVALO [Concomitant]
     Dosage: AFTER THE BREAKFAST
     Route: 048

REACTIONS (1)
  - INTERSTITIAL LUNG DISEASE [None]
